FAERS Safety Report 7060101-9 (Version None)
Quarter: 2010Q4

REPORT INFORMATION
  Report Type: 
  Country: None (occurrence: None)
  Receive Date: 20101025
  Receipt Date: 20101015
  Transmission Date: 20110411
  Serious: Yes (Death)
  Sender: FDA-Public Use
  Company Number: GXKR2010GB10457

PATIENT
  Age: 66 Year
  Sex: Male

DRUGS (3)
  1. TRAMADOL (NGX) [Suspect]
     Indication: ANALGESIC THERAPY
     Route: 065
  2. DURAGESIC-100 [Interacting]
     Indication: ANALGESIC THERAPY
     Dosage: 75 UG, QH
     Route: 062
     Dates: start: 20090917
  3. FLUOXETINE [Concomitant]
     Indication: DEPRESSION
     Dosage: 40 MG, QD

REACTIONS (4)
  - DRUG TOXICITY [None]
  - EMPHYSEMA [None]
  - MULTIPLE DRUG OVERDOSE [None]
  - MYOCARDIAL ISCHAEMIA [None]
